FAERS Safety Report 9037231 (Version 1)
Quarter: 2012Q4

REPORT INFORMATION
  Report Type: Spontaneous
  Country: US (occurrence: None)
  Receive Date: 20121211
  Receipt Date: 20121211
  Transmission Date: 20130627
  Serious: Yes (Disabling, Other)
  Sender: FDA-Public Use
  Company Number: 2012034118

PATIENT
  Age: 57 Year
  Sex: Male

DRUGS (1)
  1. IVIG [Suspect]
     Dosage: intravenous (not otherwise specified)
     Route: 042

REACTIONS (2)
  - Retinal artery thrombosis [None]
  - Blindness [None]
